FAERS Safety Report 18170159 (Version 2)
Quarter: 2021Q1

REPORT INFORMATION
  Report Type: Spontaneous
  Country: US (occurrence: US)
  Receive Date: 20200819
  Receipt Date: 20210209
  Transmission Date: 20210419
  Serious: Yes (Other)
  Sender: FDA-Public Use
  Company Number: US-ASTRAZENECA-2020SF01533

PATIENT
  Age: 26843 Day
  Sex: Male
  Weight: 149.7 kg

DRUGS (48)
  1. VITAMIN B3 [Concomitant]
     Active Substance: NIACIN
     Indication: HYPOVITAMINOSIS
  2. NORCO [Concomitant]
     Active Substance: ACETAMINOPHEN\HYDROCODONE BITARTRATE
  3. GLUCOPHAGE [Concomitant]
     Active Substance: METFORMIN HYDROCHLORIDE
  4. CLARITIN [Concomitant]
     Active Substance: LORATADINE
  5. ZITHROMAX [Concomitant]
     Active Substance: AZITHROMYCIN DIHYDRATE
  6. LOTREL [Concomitant]
     Active Substance: AMLODIPINE BESYLATE\BENAZEPRIL HYDROCHLORIDE
  7. CARISOPRODOL. [Concomitant]
     Active Substance: CARISOPRODOL
  8. ASPIRIN. [Concomitant]
     Active Substance: ASPIRIN
     Indication: CARDIAC DISORDER
  9. VITAMIN B COMPLEX [Concomitant]
     Active Substance: CYANOCOBALAMIN\DEXPANTHENOL\NIACINAMIDE\PYRIDOXINE HYDROCHLORIDE\RIBOFLAVIN 5^-PHOSPHATE SODIUM\THIAMINE HYDROCHLORIDE\VITAMIN B COMPLEX
     Indication: VITAMIN B COMPLEX DEFICIENCY
  10. COREG [Concomitant]
     Active Substance: CARVEDILOL
  11. VITAMIN D3 [Concomitant]
     Active Substance: CHOLECALCIFEROL
  12. ZESTRIL [Concomitant]
     Active Substance: LISINOPRIL
  13. TESTIM [Concomitant]
     Active Substance: TESTOSTERONE
  14. AVINZA [Concomitant]
     Active Substance: MORPHINE SULFATE
  15. NEXIUM [Suspect]
     Active Substance: ESOMEPRAZOLE MAGNESIUM
     Indication: GASTROOESOPHAGEAL REFLUX DISEASE
     Route: 048
     Dates: start: 2001, end: 2014
  16. FLONASE [Concomitant]
     Active Substance: FLUTICASONE PROPIONATE
     Indication: HYPERSENSITIVITY
  17. GABAPENTIN. [Concomitant]
     Active Substance: GABAPENTIN
     Indication: NEUROPATHY PERIPHERAL
  18. VITAMIN D [Concomitant]
     Active Substance: VITAMIN D NOS
  19. VITAMIN A [Concomitant]
     Active Substance: VITAMIN A
  20. BYDUREON [Concomitant]
     Active Substance: EXENATIDE
  21. VIAGRA [Concomitant]
     Active Substance: SILDENAFIL CITRATE
  22. PARACETAMOL [Concomitant]
     Active Substance: ACETAMINOPHEN
  23. LUNESTA [Concomitant]
     Active Substance: ESZOPICLONE
  24. ALPURINOL [Concomitant]
     Indication: GOUT
     Dates: start: 2015
  25. KLOR?CON [Concomitant]
     Active Substance: POTASSIUM CHLORIDE
  26. FLEXERIL [Concomitant]
     Active Substance: CYCLOBENZAPRINE HYDROCHLORIDE
  27. NEXIUM [Suspect]
     Active Substance: ESOMEPRAZOLE MAGNESIUM
     Indication: GASTROOESOPHAGEAL REFLUX DISEASE
     Dosage: DR CAPSULE
     Route: 048
     Dates: start: 20080421
  28. FUROSEMIDE. [Concomitant]
     Active Substance: FUROSEMIDE
     Indication: SWELLING
  29. ATORVASTATIN [Concomitant]
     Active Substance: ATORVASTATIN
  30. ZAROXOLYN [Concomitant]
     Active Substance: METOLAZONE
  31. COZAAR [Concomitant]
     Active Substance: LOSARTAN POTASSIUM
  32. ZETIA [Concomitant]
     Active Substance: EZETIMIBE
     Indication: BLOOD CHOLESTEROL ABNORMAL
  33. ALKA?SELTZER [Concomitant]
     Active Substance: ANHYDROUS CITRIC ACID\ASPIRIN\SODIUM BICARBONATE
  34. VICTOZA [Concomitant]
     Active Substance: LIRAGLUTIDE
  35. PIOGLITAZONE. [Concomitant]
     Active Substance: PIOGLITAZONE
  36. CIALIS [Concomitant]
     Active Substance: TADALAFIL
  37. TIZANIDINE. [Concomitant]
     Active Substance: TIZANIDINE
  38. NEXIUM [Suspect]
     Active Substance: ESOMEPRAZOLE MAGNESIUM
     Indication: GASTROOESOPHAGEAL REFLUX DISEASE
     Route: 048
     Dates: start: 2007, end: 2014
  39. AMLODIPINE [Concomitant]
     Active Substance: AMLODIPINE BESYLATE
     Indication: BLOOD PRESSURE ABNORMAL
  40. POTASSIUM [Concomitant]
     Active Substance: POTASSIUM
     Indication: NEUROPATHY PERIPHERAL
  41. LEVOTHYROXINE. [Concomitant]
     Active Substance: LEVOTHYROXINE
  42. LEXAPRO [Concomitant]
     Active Substance: ESCITALOPRAM OXALATE
  43. ZOSTAVAX [Concomitant]
     Active Substance: VARICELLA-ZOSTER VIRUS STRAIN OKA/MERCK LIVE ANTIGEN
  44. OMEPRAZOLE. [Suspect]
     Active Substance: OMEPRAZOLE
     Indication: GASTROOESOPHAGEAL REFLUX DISEASE
     Dosage: GENERIC
     Route: 065
     Dates: start: 2007, end: 2021
  45. FERROUS SULFATE. [Concomitant]
     Active Substance: FERROUS SULFATE
     Indication: IRON DEFICIENCY
  46. WELLBUTRIN [Concomitant]
     Active Substance: BUPROPION HYDROCHLORIDE
  47. MELOXICAM. [Concomitant]
     Active Substance: MELOXICAM
  48. LIDODERM [Concomitant]
     Active Substance: LIDOCAINE

REACTIONS (1)
  - Chronic kidney disease [Not Recovered/Not Resolved]

NARRATIVE: CASE EVENT DATE: 20181012
